FAERS Safety Report 17435987 (Version 3)
Quarter: 2020Q2

REPORT INFORMATION
  Report Type: Report from Study
  Country: US (occurrence: US)
  Receive Date: 20200219
  Receipt Date: 20200406
  Transmission Date: 20200713
  Serious: Yes (Other)
  Sender: FDA-Public Use
  Company Number: US-UCBSA-2020006630

PATIENT
  Age: 54 Year
  Sex: Female

DRUGS (3)
  1. BRIVIACT [Suspect]
     Active Substance: BRIVARACETAM
     Indication: PARTIAL SEIZURES
     Dosage: 100 MILLIGRAM, 2X/DAY (BID)
     Route: 048
  2. BRIVIACT [Suspect]
     Active Substance: BRIVARACETAM
     Indication: SEIZURE
     Dosage: 100 MILLIGRAM, 2X/DAY (BID)
     Route: 048
     Dates: start: 2016
  3. LEVETIRACETAM. [Suspect]
     Active Substance: LEVETIRACETAM
     Indication: SEIZURE
     Dosage: UNK
     Route: 048
     Dates: start: 202001, end: 202002

REACTIONS (4)
  - Petit mal epilepsy [Recovered/Resolved]
  - Seizure [Not Recovered/Not Resolved]
  - Memory impairment [Unknown]
  - Cardiac disorder [Unknown]

NARRATIVE: CASE EVENT DATE: 202001
